FAERS Safety Report 11670278 (Version 3)
Quarter: 2016Q2

REPORT INFORMATION
  Report Type: Spontaneous
  Country: JP (occurrence: JP)
  Receive Date: 20151028
  Receipt Date: 20160419
  Transmission Date: 20160815
  Serious: Yes (Hospitalization)
  Sender: FDA-Public Use
  Company Number: JP-AMGEN-JPNSP2015112692

PATIENT
  Age: 74 Year
  Sex: Male
  Weight: 53 kg

DRUGS (21)
  1. VECTIBIX [Suspect]
     Active Substance: PANITUMUMAB
     Indication: METASTASES TO LIVER
  2. ISOVORIN                           /06682103/ [Concomitant]
     Active Substance: LEUCOVORIN CALCIUM
     Dosage: 300 MG, Q2WEEKS
     Route: 041
     Dates: start: 20130530, end: 20130711
  3. HICORT [Concomitant]
     Active Substance: BETAMETHASONE SODIUM PHOSPHATE
     Dosage: 8 MG, UNK
     Route: 050
  4. EMEND [Concomitant]
     Active Substance: APREPITANT
     Dosage: UNK
     Route: 048
  5. 5-FU                               /00098801/ [Concomitant]
     Active Substance: FLUOROURACIL
     Indication: COLON CANCER
     Dosage: UNK
     Route: 042
  6. ALOXI [Concomitant]
     Active Substance: PALONOSETRON HYDROCHLORIDE
     Dosage: 1 DF, UNK
     Route: 050
  7. POLARAMINE [Concomitant]
     Active Substance: DEXCHLORPHENIRAMINE MALEATE
     Dosage: 5 MG, UNK
     Route: 065
  8. 5-FU                               /00098801/ [Concomitant]
     Active Substance: FLUOROURACIL
     Dosage: 3743 MG, Q2WEEKS
     Route: 042
     Dates: start: 20130530, end: 20130711
  9. BUSCOPAN [Concomitant]
     Active Substance: BUTYLSCOPOLAMINE BROMIDE
     Dosage: 1 DF, UNK
     Route: 050
  10. CELESTAMINE [Concomitant]
     Active Substance: BETAMETHASONE\DEXCHLORPHENIRAMINE MALEATE
     Dosage: 1 DF, BID
     Route: 048
  11. NEXIUM [Concomitant]
     Active Substance: ESOMEPRAZOLE MAGNESIUM
     Dosage: 20 MG, QD
     Route: 048
  12. VECTIBIX [Suspect]
     Active Substance: PANITUMUMAB
     Indication: COLON CANCER
     Dosage: 350 MG, Q2WEEKS
     Route: 041
     Dates: start: 20130530, end: 20130801
  13. LOPEMIN                            /00384302/ [Concomitant]
     Active Substance: LOPERAMIDE HYDROCHLORIDE
     Dosage: 1 MG, QD
     Route: 048
  14. BLOPRESS [Concomitant]
     Active Substance: CANDESARTAN CILEXETIL
     Dosage: 4 MG, QD
     Route: 048
  15. CAMPTO [Concomitant]
     Active Substance: IRINOTECAN
     Indication: COLON CANCER
     Dosage: UNK
     Route: 041
     Dates: start: 201301
  16. RINDERON                           /00008501/ [Concomitant]
     Active Substance: BETAMETHASONE
     Dosage: 2 MG, UNK
     Route: 048
  17. CAMPTO [Concomitant]
     Active Substance: IRINOTECAN
     Indication: METASTASES TO LIVER
     Dosage: 250 MG, Q2WEEKS
     Route: 041
     Dates: start: 20130530, end: 20130711
  18. 5-FU                               /00098801/ [Concomitant]
     Active Substance: FLUOROURACIL
     Indication: METASTASES TO LIVER
     Dosage: UNK
     Route: 042
     Dates: start: 201301
  19. ISOVORIN                           /06682103/ [Concomitant]
     Active Substance: LEUCOVORIN CALCIUM
     Indication: COLON CANCER
     Dosage: UNK
     Route: 041
  20. ISOVORIN                           /06682103/ [Concomitant]
     Active Substance: LEUCOVORIN CALCIUM
     Indication: METASTASES TO LIVER
     Dosage: UNK
     Route: 041
     Dates: start: 201301
  21. NAUZELIN [Concomitant]
     Active Substance: DOMPERIDONE
     Dosage: 10 MG, TID
     Route: 048

REACTIONS (3)
  - Pneumatosis intestinalis [Recovered/Resolved]
  - Humerus fracture [Unknown]
  - Fall [Recovered/Resolved]

NARRATIVE: CASE EVENT DATE: 20130729
